FAERS Safety Report 20542569 (Version 1)
Quarter: 2022Q1

REPORT INFORMATION
  Report Type: Spontaneous
  Country: AU (occurrence: AU)
  Receive Date: 20220302
  Receipt Date: 20220302
  Transmission Date: 20220423
  Serious: Yes (Other)
  Sender: FDA-Public Use
  Company Number: AU-BAYER-2022A027987

PATIENT
  Age: 35 Year
  Sex: Male

DRUGS (3)
  1. NEXAVAR [Suspect]
     Active Substance: SORAFENIB
     Indication: Acute myeloid leukaemia
     Dosage: 400 MG, BID
  2. NEXAVAR [Suspect]
     Active Substance: SORAFENIB
     Indication: FLT3 gene mutation
  3. PREDNISOLONE [Concomitant]
     Active Substance: PREDNISOLONE
     Dosage: UNK

REACTIONS (8)
  - Eccrine squamous syringometaplasia [None]
  - Myelosuppression [None]
  - Rash [None]
  - Rash macular [None]
  - Rash papular [None]
  - Biopsy skin [None]
  - Post inflammatory pigmentation change [None]
  - Off label use [None]
